FAERS Safety Report 18902294 (Version 1)
Quarter: 2021Q1

REPORT INFORMATION
  Report Type: Spontaneous
  Country: GR (occurrence: GR)
  Receive Date: 20210217
  Receipt Date: 20210217
  Transmission Date: 20210420
  Serious: Yes (Other)
  Sender: FDA-Public Use
  Company Number: GR-HTU-2021GR021721

PATIENT
  Sex: Male

DRUGS (2)
  1. MECHLORETHAMINE HYDROCHLORIDE [Suspect]
     Active Substance: MECHLORETHAMINE HYDROCHLORIDE
     Indication: CUTANEOUS T-CELL LYMPHOMA STAGE I
     Dosage: UNK, QD
     Route: 061
     Dates: start: 20190801, end: 20190828
  2. PEGINTERFERON ALFA?2A. [Suspect]
     Active Substance: PEGINTERFERON ALFA-2A
     Indication: CUTANEOUS T-CELL LYMPHOMA STAGE I
     Dosage: UNK, UNKNOWN
     Dates: end: 201911

REACTIONS (1)
  - Malignant neoplasm progression [Unknown]
